FAERS Safety Report 5525618-4 (Version None)
Quarter: 2007Q4

REPORT INFORMATION
  Report Type: 
  Country: None (occurrence: None)
  Receive Date: 20071120
  Receipt Date: 20071120
  Transmission Date: 20080405
  Serious: Yes (Hospitalization)
  Sender: FDA-Public Use
  Company Number: None

PATIENT
  Age: 58 Year
  Sex: Female
  Weight: 74.3899 kg

DRUGS (2)
  1. SIMVASTATIN [Suspect]
     Indication: BLOOD CHOLESTEROL INCREASED
     Dosage: 40 MGS TWICE A DAY PO
     Route: 048
     Dates: start: 20070901, end: 20071114
  2. BONIVA [Suspect]
     Indication: OSTEOPENIA
     Dosage: 150 MGS ONCE A MONTH PO
     Route: 048
     Dates: start: 20070901, end: 20071101

REACTIONS (5)
  - BURNING SENSATION [None]
  - CRYING [None]
  - FEELING ABNORMAL [None]
  - IMPAIRED WORK ABILITY [None]
  - PAIN IN EXTREMITY [None]
